FAERS Safety Report 4357106-5 (Version None)
Quarter: 2004Q2

REPORT INFORMATION
  Report Type: 
  Country: None (occurrence: None)
  Receive Date: 20040507
  Receipt Date: 20040426
  Transmission Date: 20050107
  Serious: Yes (Hospitalization)
  Sender: FDA-Public Use
  Company Number: 2004027767

PATIENT
  Age: 81 Year
  Sex: Male

DRUGS (4)
  1. ZOLOFT [Suspect]
     Indication: VERTIGO
     Dosage: 50 MG (1 IN 1 D), ORAL
     Route: 048
  2. ACETYLSALICYLIC ACID SRT [Suspect]
     Indication: HYPERTENSION
     Dosage: 75 MG (1 IN 1 D), ORAL
     Route: 048
     Dates: end: 20040217
  3. SALURES-K (BENDROFLUMETHIAZIDE, POTASSIUM CHLORIDE) [Concomitant]
  4. SPIRONOLAKTON NM PHARMA (SPIRONOLACTONE) [Concomitant]

REACTIONS (2)
  - GASTROINTESTINAL HAEMORRHAGE [None]
  - HYPERTENSION [None]
